FAERS Safety Report 19715062 (Version 1)
Quarter: 2021Q3

REPORT INFORMATION
  Report Type: Report from Study
  Country: PE (occurrence: PE)
  Receive Date: 20210818
  Receipt Date: 20210818
  Transmission Date: 20211014
  Serious: Yes (Other)
  Sender: FDA-Public Use
  Company Number: NVSC2021PE044604

PATIENT
  Age: 38 Year
  Sex: Female

DRUGS (1)
  1. KISQALI [Suspect]
     Active Substance: RIBOCICLIB
     Indication: BREAST CANCER METASTATIC
     Dosage: 600 MG, QD
     Route: 048
     Dates: start: 20210212, end: 20210707

REACTIONS (6)
  - Vomiting [Unknown]
  - Diarrhoea [Unknown]
  - Dermatitis allergic [Unknown]
  - Swelling [Unknown]
  - Erysipelas [Unknown]
  - Pruritus [Unknown]

NARRATIVE: CASE EVENT DATE: 20210218
